FAERS Safety Report 7927925-4 (Version None)
Quarter: 2011Q4

REPORT INFORMATION
  Report Type: 
  Country: None (occurrence: None)
  Receive Date: 20111118
  Receipt Date: 20111107
  Transmission Date: 20120403
  Serious: Yes (Hospitalization)
  Sender: FDA-Public Use
  Company Number: ES-SANOFI-AVENTIS-2011SA071123

PATIENT
  Age: 58 Year
  Sex: Male

DRUGS (10)
  1. URSODIOL [Suspect]
     Indication: AUTOIMMUNE HEPATITIS
     Route: 048
     Dates: start: 20090101
  2. EZETIMIBE [Suspect]
     Route: 065
     Dates: start: 20080101
  3. METFORMIN HCL [Suspect]
     Route: 065
     Dates: start: 20090701
  4. DOXAZOSIN MESYLATE [Suspect]
     Route: 065
     Dates: start: 20090701
  5. GLIMEPIRIDE [Suspect]
     Route: 065
     Dates: start: 20020101, end: 20071201
  6. AMLODIPINE [Suspect]
     Route: 065
     Dates: start: 20090701
  7. ENALAPRIL MALEATE [Suspect]
     Route: 065
     Dates: start: 20080101
  8. EZETIMIBE [Suspect]
     Route: 065
     Dates: start: 20090701
  9. ATORVASTATIN [Suspect]
     Route: 065
     Dates: start: 20020101, end: 20071201
  10. ENALAPRIL MALEATE AND HYDROCHLOROTHIAZIDE [Suspect]
     Route: 065
     Dates: start: 20020101, end: 20071201

REACTIONS (1)
  - AUTOIMMUNE HEPATITIS [None]
